FAERS Safety Report 8288916-X (Version None)
Quarter: 2012Q2

REPORT INFORMATION
  Report Type: 
  Country: None (occurrence: None)
  Receive Date: 20120417
  Receipt Date: 20120409
  Transmission Date: 20120825
  Serious: Yes (Hospitalization, Other)
  Sender: FDA-Public Use
  Company Number: US-BAYER-201033443NA

PATIENT
  Age: 48 Year
  Sex: Female
  Weight: 70.295 kg

DRUGS (7)
  1. ALLEGRA [Concomitant]
  2. FLOVENT [Concomitant]
     Indication: ASTHMA
  3. YASMIN [Suspect]
     Indication: ORAL CONTRACEPTION
     Dosage: UNK UNK, UNK
     Route: 048
     Dates: start: 20071105, end: 20090101
  4. ALBUTEROL [Concomitant]
     Indication: ASTHMA
  5. IRON [Concomitant]
  6. PROCTOFOAM [Concomitant]
     Indication: HAEMORRHOIDS
  7. PROCTOFOAM [Concomitant]
     Indication: CONSTIPATION

REACTIONS (9)
  - PHLEBITIS SUPERFICIAL [None]
  - CHOLECYSTECTOMY [None]
  - ANXIETY [None]
  - OEDEMA PERIPHERAL [None]
  - CHOLECYSTITIS CHRONIC [None]
  - SCAR [None]
  - DEPRESSION [None]
  - THROMBOSIS [None]
  - MENTAL DISORDER [None]
